FAERS Safety Report 8123447-9 (Version None)
Quarter: 2012Q1

REPORT INFORMATION
  Report Type: 
  Country: None (occurrence: None)
  Receive Date: 20120208
  Receipt Date: 20120127
  Transmission Date: 20120608
  Serious: Yes (Other)
  Sender: FDA-Public Use
  Company Number: PHFR2012GB000639

PATIENT
  Sex: Male

DRUGS (2)
  1. SULPIRIDE [Concomitant]
     Indication: SCHIZOPHRENIA
     Dosage: 200 MG, BID
     Route: 048
  2. CLOZARIL [Suspect]
     Indication: SCHIZOPHRENIA
     Dosage: 300 MG MORNING AND 600 MG NIGHT
     Route: 048
     Dates: start: 19940304

REACTIONS (1)
  - INCORRECT DOSE ADMINISTERED [None]
